FAERS Safety Report 21652612 (Version 1)
Quarter: 2022Q4

REPORT INFORMATION
  Report Type: Spontaneous
  Country: US (occurrence: None)
  Receive Date: 20221124
  Receipt Date: 20221124
  Transmission Date: 20230113
  Serious: No
  Sender: FDA-Public Use
  Company Number: None

PATIENT
  Age: 74 Year
  Sex: Male

DRUGS (2)
  1. OPSUMIT [Suspect]
     Active Substance: MACITENTAN
     Indication: Pulmonary arterial hypertension
     Dosage: 10 MG QD PO
     Route: 048
     Dates: start: 201911
  2. ADEMPAS [Suspect]
     Active Substance: RIOCIGUAT

REACTIONS (2)
  - Hospitalisation [None]
  - Inappropriate schedule of product administration [None]

NARRATIVE: CASE EVENT DATE: 20221121
